FAERS Safety Report 5065657-3 (Version None)
Quarter: 2006Q3

REPORT INFORMATION
  Report Type: 
  Country: None (occurrence: None)
  Receive Date: 20060731
  Receipt Date: 20060727
  Transmission Date: 20061208
  Serious: Yes (Death, Life-Threatening, Hospitalization, Other)
  Sender: FDA-Public Use
  Company Number: DE-BRISTOL-MYERS SQUIBB COMPANY-13457791

PATIENT
  Age: 69 Year
  Sex: Male

DRUGS (8)
  1. PACLITAXEL [Suspect]
     Indication: OESOPHAGEAL CARCINOMA
     Route: 042
     Dates: start: 20040204, end: 20040204
  2. PEMETREXED DISODIUM [Suspect]
     Indication: OESOPHAGEAL CARCINOMA
     Route: 042
     Dates: start: 20040204, end: 20040204
  3. FOLIC ACID [Concomitant]
  4. DEXAMETHASONE TAB [Concomitant]
  5. VITAMIN B-12 [Concomitant]
  6. ATENOLOL [Concomitant]
  7. METAMIZOL [Concomitant]
  8. ZOPICLON [Concomitant]

REACTIONS (13)
  - ANAEMIA [None]
  - CARDIOPULMONARY FAILURE [None]
  - DEATH [None]
  - DIARRHOEA [None]
  - FALL [None]
  - FATIGUE [None]
  - FRACTURE [None]
  - LEUKOPENIA [None]
  - NEUTROPENIA [None]
  - PAIN IN EXTREMITY [None]
  - PLATELET COUNT DECREASED [None]
  - PNEUMONIA [None]
  - SYNCOPE [None]
